FAERS Safety Report 25534877 (Version 2)
Quarter: 2025Q3

REPORT INFORMATION
  Report Type: Spontaneous
  Country: EU (occurrence: EU)
  Receive Date: 20250709
  Receipt Date: 20250906
  Transmission Date: 20251021
  Serious: Yes (Other)
  Sender: ALEXION PHARMACEUTICALS
  Company Number: EU-ASTRAZENECA-202507EEA002631DE

PATIENT

DRUGS (2)
  1. DURVALUMAB [Suspect]
     Active Substance: DURVALUMAB
     Route: 065
  2. IMJUDO [Suspect]
     Active Substance: TREMELIMUMAB\TREMELIMUMAB-ACTL
     Route: 065

REACTIONS (10)
  - Myocarditis [Unknown]
  - Hyperthyroidism [Unknown]
  - Hypothyroidism [Unknown]
  - Secondary adrenocortical insufficiency [Unknown]
  - Thyroiditis [Unknown]
  - Hypophysitis [Unknown]
  - Performance status decreased [Unknown]
  - Asthenia [Unknown]
  - Diarrhoea [Unknown]
  - Pleural effusion [Unknown]
